FAERS Safety Report 23241507 (Version 1)
Quarter: 2023Q4

REPORT INFORMATION
  Report Type: Spontaneous
  Country: US (occurrence: US)
  Receive Date: 20231129
  Receipt Date: 20231129
  Transmission Date: 20240110
  Serious: No
  Sender: FDA-Public Use
  Company Number: US-ABBVIE-5518647

PATIENT
  Age: 37 Year
  Sex: Female

DRUGS (2)
  1. BOTOX [Suspect]
     Active Substance: ONABOTULINUMTOXINA
     Indication: Gastrooesophageal reflux disease
     Dosage: TIME INTERVAL: AS NECESSARY
     Route: 065
     Dates: start: 202201, end: 202201
  2. BOTOX [Suspect]
     Active Substance: ONABOTULINUMTOXINA
     Indication: Gastrooesophageal reflux disease
     Dosage: TIME INTERVAL: AS NECESSARY
     Route: 065
     Dates: start: 20231024, end: 20231024

REACTIONS (2)
  - Injection site pruritus [Recovered/Resolved]
  - Off label use [Unknown]

NARRATIVE: CASE EVENT DATE: 20231024
